FAERS Safety Report 6290966-X (Version None)
Quarter: 2009Q3

REPORT INFORMATION
  Report Type: 
  Country: None (occurrence: None)
  Receive Date: 20090730
  Receipt Date: 20090720
  Transmission Date: 20100115
  Serious: Yes (Death)
  Sender: FDA-Public Use
  Company Number: GB-JNJCH-2009019704

PATIENT
  Age: 79 Year
  Sex: Male

DRUGS (2)
  1. CALPOL SIX PLUS [Suspect]
     Indication: DRUG USE FOR UNKNOWN INDICATION
     Dosage: TEXT:10 ML (FREQUENCY UNSPECIFIED)
     Route: 042
  2. DRUG, UNSPECIFIED [Suspect]
     Indication: DRUG USE FOR UNKNOWN INDICATION
     Dosage: TEXT:100 MG (FREQUENCY UNSPECIFIED)
     Route: 042

REACTIONS (3)
  - DEATH [None]
  - INCORRECT ROUTE OF DRUG ADMINISTRATION [None]
  - WRONG TECHNIQUE IN DRUG USAGE PROCESS [None]
